FAERS Safety Report 5249894-0 (Version None)
Quarter: 2007Q1

REPORT INFORMATION
  Report Type: 
  Country: None (occurrence: None)
  Receive Date: 20070228
  Receipt Date: 20060227
  Transmission Date: 20070707
  Serious: No
  Sender: FDA-Public Use
  Company Number: US-GLAXOSMITHKLINE-A0426624A

PATIENT
  Age: 35 Year
  Sex: Female

DRUGS (7)
  1. LAMICTAL [Suspect]
     Indication: BIPOLAR DISORDER
     Dosage: 25MG PER DAY
     Route: 048
     Dates: start: 20030905
  2. XANAX [Concomitant]
  3. PROZAC [Concomitant]
  4. TYLENOL [Concomitant]
  5. RISPERDAL [Concomitant]
     Indication: SLEEP DISORDER
  6. TEMAZEPAM [Concomitant]
     Indication: ANXIETY
  7. XANAX [Concomitant]

REACTIONS (12)
  - ACNE [None]
  - ANGER [None]
  - BACK PAIN [None]
  - DIZZINESS [None]
  - ELEVATED MOOD [None]
  - EUPHORIC MOOD [None]
  - GLOSSITIS [None]
  - IRRITABILITY [None]
  - MUSCULOSKELETAL PAIN [None]
  - NECK PAIN [None]
  - NIGHT SWEATS [None]
  - PSYCHOMOTOR HYPERACTIVITY [None]
